FAERS Safety Report 4474116-8 (Version None)
Quarter: 2004Q4

REPORT INFORMATION
  Report Type: 
  Country: None (occurrence: None)
  Receive Date: 20041008
  Receipt Date: 20040927
  Transmission Date: 20050328
  Serious: Yes (Hospitalization, Disabling)
  Sender: FDA-Public Use
  Company Number: BRO-007728

PATIENT
  Age: 59 Year
  Sex: Female

DRUGS (7)
  1. IOPAMIDOL-300 [Suspect]
     Indication: ARTHROGRAM
     Dosage: 0.5 ML; A FEW SECS
     Dates: start: 20040804, end: 20040804
  2. IOPAMIDOL-300 [Suspect]
     Indication: CRANIAL NEUROPATHY
     Dosage: 0.5 ML; A FEW SECS
     Dates: start: 20040804, end: 20040804
  3. XYLOCAINE HYDROCHLORIDE, (LIDOCAINE HYDROCHLORIDE) [Concomitant]
  4. HYDROCORTANCYL, (PREDNISOLONE), [Concomitant]
  5. MIGPRIV [Concomitant]
  6. ACETAMINOPHEN [Concomitant]
  7. VIDORA, (INDORAMIN) [Concomitant]

REACTIONS (15)
  - ACCIDENT [None]
  - BONE MARROW DISORDER [None]
  - BRAIN OEDEMA [None]
  - CSF TEST ABNORMAL [None]
  - DYSAESTHESIA [None]
  - DYSPNOEA [None]
  - HYPOTENSION [None]
  - IMMUNOGLOBULINS INCREASED [None]
  - MYELITIS [None]
  - NERVOUS SYSTEM DISORDER [None]
  - OEDEMA [None]
  - QUADRIPLEGIA [None]
  - SPINAL DISORDER [None]
  - SYNCOPE VASOVAGAL [None]
  - TRANSAMINASES INCREASED [None]
